FAERS Safety Report 4672543-7 (Version None)
Quarter: 2005Q2

REPORT INFORMATION
  Report Type: 
  Country: None (occurrence: None)
  Receive Date: 20050524
  Receipt Date: 20050509
  Transmission Date: 20051028
  Serious: Yes (Hospitalization)
  Sender: FDA-Public Use
  Company Number: GBWYE651409MAY05

PATIENT
  Sex: Female
  Weight: 63 kg

DRUGS (4)
  1. ENBREL [Suspect]
     Indication: RHEUMATOID ARTHRITIS
     Route: 058
     Dates: start: 20040723, end: 20040806
  2. PARACETAMOL [Concomitant]
  3. CELECOXIB [Concomitant]
  4. ISONIAZID [Concomitant]

REACTIONS (3)
  - DIVERTICULUM [None]
  - INTESTINAL POLYP [None]
  - PALPITATIONS [None]
